FAERS Safety Report 26047346 (Version 1)
Quarter: 2025Q4

REPORT INFORMATION
  Report Type: Report from Study
  Country: PH (occurrence: PH)
  Receive Date: 20251114
  Receipt Date: 20251114
  Transmission Date: 20260117
  Serious: Yes (Other)
  Sender: PFIZER
  Company Number: PH-TAKEDA-2025TUS040137

PATIENT
  Age: 47 Year
  Sex: Female

DRUGS (5)
  1. ADCETRIS [Suspect]
     Active Substance: BRENTUXIMAB VEDOTIN
     Indication: Hodgkin^s disease refractory
     Dosage: 100 MILLIGRAM, Q3WEEKS
     Route: 042
  2. ADCETRIS [Suspect]
     Active Substance: BRENTUXIMAB VEDOTIN
     Dosage: 50 MILLIGRAM
     Route: 065
  3. ADCETRIS [Suspect]
     Active Substance: BRENTUXIMAB VEDOTIN
     Dosage: 100 MILLIGRAM, Q3WEEKS
     Route: 042
  4. CISPLATIN [Concomitant]
     Active Substance: CISPLATIN
     Dosage: UNK
     Route: 065
  5. CYTARABINE [Concomitant]
     Active Substance: CYTARABINE
     Dosage: UNK
     Route: 065

REACTIONS (14)
  - Peripheral swelling [Recovering/Resolving]
  - Pain [Recovering/Resolving]
  - Diabetes mellitus inadequate control [Recovering/Resolving]
  - Dupuytren^s contracture [Recovering/Resolving]
  - Neuropathy peripheral [Recovering/Resolving]
  - Lethargy [Recovering/Resolving]
  - Dizziness [Not Recovered/Not Resolved]
  - Vomiting [Not Recovered/Not Resolved]
  - Photophobia [Recovering/Resolving]
  - Parosmia [Recovering/Resolving]
  - Auditory disorder [Recovering/Resolving]
  - Headache [Recovering/Resolving]
  - Nausea [Recovering/Resolving]
  - Abscess limb [Unknown]

NARRATIVE: CASE EVENT DATE: 20250826
